FAERS Safety Report 7803675-X (Version None)
Quarter: 2011Q4

REPORT INFORMATION
  Report Type: 
  Country: None (occurrence: None)
  Receive Date: 20111010
  Receipt Date: 20111003
  Transmission Date: 20120403
  Serious: Yes (Hospitalization)
  Sender: FDA-Public Use
  Company Number: US-BIOGENIDEC-2009BI020554

PATIENT
  Sex: Female

DRUGS (2)
  1. AVONEX [Suspect]
     Indication: MULTIPLE SCLEROSIS
     Route: 030
     Dates: start: 20071018
  2. AVONEX [Suspect]
     Route: 030

REACTIONS (4)
  - ABASIA [None]
  - ARTHROPATHY [None]
  - FALL [None]
  - DEPRESSION [None]
